FAERS Safety Report 23673458 (Version 1)
Quarter: 2024Q1

REPORT INFORMATION
  Report Type: Report from Study
  Country: HR (occurrence: HR)
  Receive Date: 20240326
  Receipt Date: 20240326
  Transmission Date: 20240410
  Serious: Yes (Hospitalization)
  Sender: FDA-Public Use
  Company Number: HR-TEVA-VS-3173088

PATIENT
  Age: 87 Year
  Sex: Male

DRUGS (4)
  1. SIMVASTATIN [Suspect]
     Active Substance: SIMVASTATIN
     Indication: Dyslipidaemia
     Route: 065
  2. DABIGATRAN [Interacting]
     Active Substance: DABIGATRAN
     Indication: Cerebrovascular accident
     Route: 048
  3. METILDIGOXIN [Suspect]
     Active Substance: METILDIGOXIN
     Indication: Atrial fibrillation
     Route: 065
  4. INVESTIGATIONAL PRODUCT [Concomitant]
     Active Substance: INVESTIGATIONAL PRODUCT
     Indication: Prostate cancer
     Route: 065

REACTIONS (3)
  - Anticoagulation drug level decreased [Recovering/Resolving]
  - Drug ineffective [Unknown]
  - Drug interaction [Recovering/Resolving]
